FAERS Safety Report 6661856-5 (Version None)
Quarter: 2010Q1

REPORT INFORMATION
  Report Type: 
  Country: None (occurrence: None)
  Receive Date: 20100331
  Receipt Date: 20090813
  Transmission Date: 20100710
  Serious: No
  Sender: FDA-Public Use
  Company Number: US-BRISTOL-MYERS SQUIBB COMPANY-14739502

PATIENT
  Age: 72 Year
  Sex: Female

DRUGS (12)
  1. ERBITUX [Suspect]
     Indication: COLON CANCER
     Dosage: HAD RECEIVED ERBITUX 1-2 YEARS AGO AND RESTARTED AT HIGH DOSE
  2. PREDNISONE [Concomitant]
     Indication: PREMEDICATION
  3. DECADRON [Concomitant]
     Indication: PREMEDICATION
  4. ATROPINE [Concomitant]
     Indication: PREMEDICATION
  5. BENADRYL [Concomitant]
     Indication: PREMEDICATION
  6. ALLEGRA [Concomitant]
  7. SINGULAIR [Concomitant]
  8. PLAVIX [Concomitant]
  9. CARDIZEM [Concomitant]
  10. ALOXI [Concomitant]
     Indication: PREMEDICATION
  11. AVASTIN [Concomitant]
     Indication: COLON CANCER
  12. IRINOTECAN HCL [Concomitant]
     Indication: COLON CANCER

REACTIONS (1)
  - DRY SKIN [None]
